FAERS Safety Report 12370046 (Version 5)
Quarter: 2017Q2

REPORT INFORMATION
  Report Type: Spontaneous
  Country: US (occurrence: US)
  Receive Date: 20160516
  Receipt Date: 20170511
  Transmission Date: 20170830
  Serious: Yes (Hospitalization)
  Sender: FDA-Public Use
  Company Number: US-ALEXION-A201603431

PATIENT
  Age: 21 Year
  Sex: Female

DRUGS (2)
  1. SOLIRIS [Suspect]
     Active Substance: ECULIZUMAB
     Indication: HAEMOLYTIC URAEMIC SYNDROME
     Dosage: 1200 MG, Q2W
     Route: 042
     Dates: start: 20150520, end: 20170419
  2. PREDNISONE. [Suspect]
     Active Substance: PREDNISONE
     Indication: HIP DEFORMITY
     Route: 065

REACTIONS (10)
  - Asthenia [Unknown]
  - Groin pain [Recovered/Resolved]
  - Hypokinesia [Unknown]
  - Weight bearing difficulty [Not Recovered/Not Resolved]
  - Calcinosis [Not Recovered/Not Resolved]
  - Arthralgia [Not Recovered/Not Resolved]
  - Arthralgia [Unknown]
  - Hip deformity [Recovering/Resolving]
  - Femoroacetabular impingement [Recovering/Resolving]
  - Myalgia [Not Recovered/Not Resolved]

NARRATIVE: CASE EVENT DATE: 201604
